FAERS Safety Report 14245951 (Version 2)
Quarter: 2018Q2

REPORT INFORMATION
  Report Type: Report from Study
  Country: FR (occurrence: FR)
  Receive Date: 20171204
  Receipt Date: 20180406
  Transmission Date: 20180711
  Serious: Yes (Hospitalization, Other)
  Sender: FDA-Public Use
  Company Number: FR-ROCHE-2031598

PATIENT
  Age: 49 Year
  Sex: Female

DRUGS (2)
  1. RITUXIMAB. [Suspect]
     Active Substance: RITUXIMAB
     Indication: IMMUNE THROMBOCYTOPENIC PURPURA
     Route: 065
     Dates: start: 201204
  2. SULFAMETHOXAZOLE/TRIMETHOPRIM [Suspect]
     Active Substance: SULFAMETHOXAZOLE\TRIMETHOPRIM
     Indication: IMMUNE THROMBOCYTOPENIC PURPURA
     Route: 065

REACTIONS (7)
  - Diabetic metabolic decompensation [Recovered/Resolved]
  - Eczema [Unknown]
  - Thrombosis [Recovered/Resolved]
  - Acute kidney injury [Recovered/Resolved]
  - Chronic hepatitis [Unknown]
  - Autoimmune haemolytic anaemia [Unknown]
  - Infection [Unknown]

NARRATIVE: CASE EVENT DATE: 201701
